FAERS Safety Report 12423800 (Version 6)
Quarter: 2016Q3

REPORT INFORMATION
  Report Type: Spontaneous
  Country: US (occurrence: US)
  Receive Date: 20160601
  Receipt Date: 20160818
  Transmission Date: 20161109
  Serious: Yes (Hospitalization, Other)
  Sender: FDA-Public Use
  Company Number: US-PFIZER INC-2016274540

PATIENT
  Age: 85 Year
  Sex: Female
  Weight: 55 kg

DRUGS (13)
  1. FEMARA [Concomitant]
     Active Substance: LETROZOLE
     Indication: BREAST CANCER
     Dosage: 2.5 MG, DAILY
     Dates: start: 20160402
  2. VITAMIN D3 [Concomitant]
     Active Substance: CHOLECALCIFEROL
     Dosage: UNK
     Dates: start: 201604
  3. FLOMAG [Concomitant]
     Dosage: 1 DF, 2X/DAY
     Dates: start: 2010
  4. IBRANCE [Suspect]
     Active Substance: PALBOCICLIB
     Dosage: 100 MG, CYCLIC (21 DAYS,7 DAYS OFF THEN NEW CYCLE)
     Dates: start: 20160523
  5. METOPROLOL TARTRATE. [Concomitant]
     Active Substance: METOPROLOL TARTRATE
     Indication: CARDIAC DISORDER
     Dosage: 100 MG, 2X/DAY
     Dates: start: 2010
  6. CITRICAL [Concomitant]
     Active Substance: CALCIUM CITRATE
     Dosage: UNK
     Dates: start: 201604
  7. SYNTHROID [Concomitant]
     Active Substance: LEVOTHYROXINE SODIUM
     Indication: THYROID DISORDER
     Dosage: 75 UG, 1X/DAY
  8. IBRANCE [Suspect]
     Active Substance: PALBOCICLIB
     Indication: BREAST CANCER METASTATIC
     Dosage: 100 MG, ONCE DAILY BY MOUTH IN THE EVENING. TAKES FOR 21 DAYS, THEN OFF FOR 7 DAYS.
     Route: 048
     Dates: start: 20160413, end: 20160503
  9. PRAVASTATIN. [Concomitant]
     Active Substance: PRAVASTATIN
     Indication: BLOOD CHOLESTEROL ABNORMAL
     Dosage: 40 MG, ONE IN THE EVENING
     Dates: start: 2008
  10. IBRANCE [Suspect]
     Active Substance: PALBOCICLIB
     Dosage: 125 MG, UNK
  11. METFORMIN [Concomitant]
     Active Substance: METFORMIN HYDROCHLORIDE
     Indication: DIABETES MELLITUS
     Dosage: 500 MG, ONE WITH BREAKFAST AND DINNER
     Dates: start: 2008
  12. VITAMIN D3 [Concomitant]
     Active Substance: CHOLECALCIFEROL
     Indication: VITAMIN D DEFICIENCY
     Dosage: 2000, ONCE DAILY
     Dates: start: 2012
  13. CITRICAL [Concomitant]
     Active Substance: CALCIUM CITRATE
     Indication: BONE DISORDER
     Dosage: 630 MG, 2X/DAY, 1 IN THE MORNING AND 1 IN THE EVENING
     Dates: start: 201604

REACTIONS (6)
  - Confusional state [Recovered/Resolved]
  - Asthenia [Recovered/Resolved]
  - White blood cell count decreased [Unknown]
  - Blood sodium decreased [Recovered/Resolved]
  - Malaise [Recovered/Resolved]
  - Dehydration [Recovered/Resolved]

NARRATIVE: CASE EVENT DATE: 20160508
